FAERS Safety Report 10023425 (Version 1)
Quarter: 2014Q1

REPORT INFORMATION
  Report Type: Spontaneous
  Country: PH (occurrence: PH)
  Receive Date: 20140320
  Receipt Date: 20140320
  Transmission Date: 20141002
  Serious: Yes (Other)
  Sender: FDA-Public Use
  Company Number: PH-009507513-1403PHL008087

PATIENT
  Age: 64 Year
  Sex: Female

DRUGS (1)
  1. JANUMET [Suspect]
     Indication: BLOOD GLUCOSE INCREASED
     Dosage: ON AND OFF, JUST TAKE OCE THE BLOOD SUGAR LEVEL IS HIGH
     Route: 048
     Dates: start: 201103

REACTIONS (2)
  - Pancreatic carcinoma stage IV [Unknown]
  - Inappropriate schedule of drug administration [Unknown]
